FAERS Safety Report 20154295 (Version 1)
Quarter: 2021Q4

REPORT INFORMATION
  Report Type: Spontaneous
  Country: JP (occurrence: JP)
  Receive Date: 20211207
  Receipt Date: 20211207
  Transmission Date: 20220303
  Serious: Yes (Other)
  Sender: FDA-Public Use
  Company Number: JP-ORPHANEU-2021005046

PATIENT

DRUGS (10)
  1. DACTINOMYCIN [Suspect]
     Active Substance: DACTINOMYCIN
     Indication: Vaginal cancer
  2. BLEOMYCIN [Suspect]
     Active Substance: BLEOMYCIN SULFATE
     Indication: Vaginal cancer
  3. ETOPOSIDE [Suspect]
     Active Substance: ETOPOSIDE
     Indication: Vaginal cancer
  4. CISPLATIN [Suspect]
     Active Substance: CISPLATIN
     Indication: Vaginal cancer
  5. VINBLASTINE [Suspect]
     Active Substance: VINBLASTINE
     Indication: Vaginal cancer
  6. CYCLOPHOSPHAMIDE [Suspect]
     Active Substance: CYCLOPHOSPHAMIDE
     Indication: Vaginal cancer
  7. CARBOPLATIN [Suspect]
     Active Substance: CARBOPLATIN
     Indication: Vaginal cancer recurrent
  8. IFOSFAMIDE [Suspect]
     Active Substance: IFOSFAMIDE
     Indication: Vaginal cancer recurrent
  9. DOXORUBICIN [Suspect]
     Active Substance: DOXORUBICIN
     Indication: Vaginal cancer recurrent
  10. PACLITAXEL [Suspect]
     Active Substance: PACLITAXEL
     Indication: Vaginal cancer recurrent

REACTIONS (5)
  - Vaginal cancer recurrent [Unknown]
  - Bacillus bacteraemia [Unknown]
  - Haematotoxicity [Unknown]
  - Febrile neutropenia [Unknown]
  - Product use in unapproved indication [Recovered/Resolved]
